FAERS Safety Report 20542877 (Version 5)
Quarter: 2023Q2

REPORT INFORMATION
  Report Type: Spontaneous
  Country: US (occurrence: US)
  Receive Date: 20220302
  Receipt Date: 20230605
  Transmission Date: 20230722
  Serious: Yes (Other)
  Sender: FDA-Public Use
  Company Number: US-PFIZER INC-2021769600

PATIENT
  Age: 75 Year
  Sex: Female
  Weight: 97.52 kg

DRUGS (2)
  1. XELJANZ XR [Suspect]
     Active Substance: TOFACITINIB CITRATE
     Dosage: 11 MG
  2. PANTOPRAZOLE SODIUM [Concomitant]
     Active Substance: PANTOPRAZOLE SODIUM
     Indication: Abdominal discomfort

REACTIONS (4)
  - Knee arthroplasty [Unknown]
  - Psoriasis [Unknown]
  - Hypoacusis [Unknown]
  - Arthritis [Unknown]
